FAERS Safety Report 8083313-4 (Version None)
Quarter: 2012Q1

REPORT INFORMATION
  Report Type: 
  Country: None (occurrence: None)
  Receive Date: 20120127
  Receipt Date: 20110113
  Transmission Date: 20120608
  Serious: No
  Sender: FDA-Public Use
  Company Number: US-ABBOTT-11P-163-0697586-00

PATIENT
  Age: 38 Year
  Sex: Male

DRUGS (3)
  1. METHOTREXATE [Concomitant]
     Indication: PRODUCT USED FOR UNKNOWN INDICATION
     Dosage: WEEKLY
  2. HUMIRA [Suspect]
     Indication: PSORIATIC ARTHROPATHY
  3. FOLIC ACID [Concomitant]
     Indication: PRODUCT USED FOR UNKNOWN INDICATION

REACTIONS (3)
  - SINUSITIS [None]
  - RHINORRHOEA [None]
  - SINUS HEADACHE [None]
